FAERS Safety Report 11759579 (Version 1)
Quarter: 2015Q4

REPORT INFORMATION
  Report Type: Spontaneous
  Country: US (occurrence: US)
  Receive Date: 20151120
  Receipt Date: 20151120
  Transmission Date: 20160304
  Serious: No
  Sender: FDA-Public Use
  Company Number: US-JNJFOC-20151014873

PATIENT
  Age: 33 Year
  Sex: Male
  Weight: 86.18 kg

DRUGS (2)
  1. MENS ROGAINE EXTRA STRENGTH [Suspect]
     Active Substance: MINOXIDIL
     Route: 061
  2. MENS ROGAINE EXTRA STRENGTH [Suspect]
     Active Substance: MINOXIDIL
     Indication: ALOPECIA
     Dosage: ONE TIME
     Route: 061
     Dates: start: 20151018, end: 20151018

REACTIONS (2)
  - Product use issue [Unknown]
  - Drug administered at inappropriate site [Unknown]

NARRATIVE: CASE EVENT DATE: 20151018
